FAERS Safety Report 23163261 (Version 4)
Quarter: 2024Q1

REPORT INFORMATION
  Report Type: Spontaneous
  Country: GR (occurrence: GR)
  Receive Date: 20231109
  Receipt Date: 20240123
  Transmission Date: 20240409
  Serious: No
  Sender: FDA-Public Use
  Company Number: GR-PFIZER INC-PV202300178650

PATIENT
  Age: 12 Year
  Sex: Female
  Weight: 36 kg

DRUGS (1)
  1. GENOTROPIN [Suspect]
     Active Substance: SOMATROPIN
     Indication: Body height decreased
     Dosage: 7 MG DAILY/6 DAYS
     Route: 058
     Dates: start: 20231011

REACTIONS (2)
  - Device use error [Unknown]
  - Device leakage [Unknown]
